FAERS Safety Report 14502290 (Version 1)
Quarter: 2018Q1

REPORT INFORMATION
  Report Type: Spontaneous
  Country: IT (occurrence: IT)
  Receive Date: 20180208
  Receipt Date: 20180208
  Transmission Date: 20180509
  Serious: Yes (Hospitalization, Other)
  Sender: FDA-Public Use
  Company Number: IT-VISTAPHARM, INC.-VER201801-000307

PATIENT
  Age: 87 Year
  Sex: Female

DRUGS (6)
  1. SORBITOL. [Suspect]
     Active Substance: SORBITOL
     Indication: DIVERTICULITIS
  2. VALSARTAN/HYDROCHLOROTHIAZIDE [Concomitant]
     Active Substance: HYDROCHLOROTHIAZIDE\VALSARTAN
  3. FUROSEMIDE. [Concomitant]
     Active Substance: FUROSEMIDE
  4. ASPIRIN. [Concomitant]
     Active Substance: ASPIRIN
  5. LACTULOSE. [Suspect]
     Active Substance: LACTULOSE
     Indication: DIVERTICULITIS
  6. BROMAZEPAM [Concomitant]
     Active Substance: BROMAZEPAM

REACTIONS (10)
  - Rhabdomyolysis [Recovered/Resolved]
  - Delirium [Recovered/Resolved]
  - Pleural effusion [Recovered/Resolved]
  - Hyponatraemia [Recovered/Resolved]
  - Hypocalcaemia [Recovered/Resolved]
  - Electrolyte imbalance [Recovered/Resolved]
  - Drug use disorder [Recovered/Resolved]
  - Cerebrovascular disorder [Recovered/Resolved]
  - Hypokalaemia [Recovered/Resolved]
  - Metabolic alkalosis [Recovered/Resolved]
